FAERS Safety Report 6659880-1 (Version None)
Quarter: 2010Q1

REPORT INFORMATION
  Report Type: 
  Country: None (occurrence: None)
  Receive Date: 20100330
  Receipt Date: 20100330
  Transmission Date: 20100710
  Serious: Yes (Disabling)
  Sender: FDA-Public Use
  Company Number: None

PATIENT
  Sex: Male
  Weight: 90.9 kg

DRUGS (1)
  1. LAMICTAL CD [Suspect]
     Indication: BIPOLAR II DISORDER
     Dosage: 200MG 1/DAY 047
     Route: 048
     Dates: start: 20090901, end: 20100213

REACTIONS (18)
  - ARTHRALGIA [None]
  - BACK PAIN [None]
  - DRUG INEFFECTIVE [None]
  - DRY MOUTH [None]
  - FATIGUE [None]
  - FEELING COLD [None]
  - INFLUENZA LIKE ILLNESS [None]
  - INSOMNIA [None]
  - MALAISE [None]
  - MEMORY IMPAIRMENT [None]
  - MUSCULOSKELETAL PAIN [None]
  - MYALGIA [None]
  - NECK PAIN [None]
  - PAIN [None]
  - PAIN IN JAW [None]
  - SINUS HEADACHE [None]
  - TOOTHACHE [None]
  - UNEVALUABLE EVENT [None]
